FAERS Safety Report 23888563 (Version 1)
Quarter: 2024Q2

REPORT INFORMATION
  Report Type: Spontaneous
  Country: US (occurrence: None)
  Receive Date: 20240522
  Receipt Date: 20240522
  Transmission Date: 20240716
  Serious: Yes (Hospitalization)
  Sender: FDA-Public Use
  Company Number: None

PATIENT
  Age: 63 Year
  Sex: Male
  Weight: 76.9 kg

DRUGS (1)
  1. KYMRIAH [Suspect]
     Active Substance: TISAGENLECLEUCEL
     Indication: Diffuse large B-cell lymphoma
     Dosage: 1 DF DOSAFE FORM ONCE INTRAVENOUS
     Route: 042
     Dates: start: 20240402, end: 20240402

REACTIONS (4)
  - Cytokine release syndrome [None]
  - Stomatitis [None]
  - Blood pressure increased [None]
  - Bradycardia [None]

NARRATIVE: CASE EVENT DATE: 20240404
